FAERS Safety Report 14228680 (Version 2)
Quarter: 2017Q4

REPORT INFORMATION
  Report Type: Report from Study
  Country: None (occurrence: US)
  Receive Date: 20171128
  Receipt Date: 20171203
  Transmission Date: 20180321
  Serious: Yes (Other)
  Sender: FDA-Public Use
  Company Number: US-ABBVIE-17K-163-2171403-00

PATIENT
  Sex: Female

DRUGS (1)
  1. HUMIRA [Suspect]
     Active Substance: ADALIMUMAB
     Indication: CROHN^S DISEASE
     Route: 058
     Dates: end: 201708

REACTIONS (4)
  - Malaise [Not Recovered/Not Resolved]
  - Cardiomegaly [Unknown]
  - Bronchitis [Not Recovered/Not Resolved]
  - Clubbing [Not Recovered/Not Resolved]
